FAERS Safety Report 9784935 (Version 2)
Quarter: 2013Q4

REPORT INFORMATION
  Report Type: Report from Study
  Country: JP (occurrence: JP)
  Receive Date: 20131227
  Receipt Date: 20131227
  Transmission Date: 20140711
  Serious: Yes (Death, Hospitalization, Other)
  Sender: FDA-Public Use
  Company Number: JP-AMGEN-JPNCT2012084719

PATIENT
  Age: 83 Year
  Sex: Female
  Weight: 50 kg

DRUGS (19)
  1. DARBEPOETIN ALFA [Suspect]
     Indication: NEPHROGENIC ANAEMIA
     Dosage: 30 MUG, Q2WK
     Route: 040
     Dates: start: 20110616, end: 20130509
  2. ARTIST [Concomitant]
     Route: 048
  3. ARTIST [Concomitant]
     Dosage: UNK
  4. TAKEPRON [Concomitant]
     Dosage: UNK
     Route: 048
  5. LASIX                              /00032601/ [Concomitant]
     Dosage: UNK
     Route: 048
  6. FLUITRAN [Concomitant]
     Dosage: UNK
     Route: 048
  7. WARFARIN                           /00014803/ [Concomitant]
     Dosage: UNK
     Route: 048
  8. METGLUCO [Concomitant]
     Dosage: UNK
     Route: 048
  9. BASEN                              /01290601/ [Concomitant]
     Dosage: UNK
     Route: 048
  10. NESINA [Concomitant]
     Dosage: UNK
     Route: 048
  11. PURSENNIDE                         /00571901/ [Concomitant]
     Dosage: UNK
     Route: 048
  12. MAGLAX [Concomitant]
     Dosage: UNK
     Route: 048
  13. HALCION [Concomitant]
     Dosage: UNK
     Route: 048
  14. MEROPEN                            /01250501/ [Concomitant]
     Dosage: UNK
     Route: 042
  15. WARFARIN [Concomitant]
     Dosage: UNK
     Route: 048
  16. CALONAL [Concomitant]
     Dosage: UNK
     Route: 048
  17. ALDACTONE A [Concomitant]
     Dosage: UNK
     Route: 048
  18. SLOW-K [Concomitant]
     Dosage: UNK
     Route: 048
  19. FERO-GRADUMET [Concomitant]
     Indication: DIABETIC NEPHROPATHY
     Dosage: UNK
     Route: 048

REACTIONS (3)
  - Pulmonary infarction [Fatal]
  - Urinary tract infection [Recovering/Resolving]
  - Cardiac failure [Recovered/Resolved]
